FAERS Safety Report 24037715 (Version 1)
Quarter: 2024Q3

REPORT INFORMATION
  Report Type: Spontaneous
  Country: US (occurrence: US)
  Receive Date: 20240702
  Receipt Date: 20240702
  Transmission Date: 20241016
  Serious: Yes (Hospitalization, Other)
  Sender: APOTEX
  Company Number: US-APOTEX-2024AP007703

PATIENT
  Age: 62 Year
  Sex: Male

DRUGS (2)
  1. BENDAMUSTINE [Suspect]
     Active Substance: BENDAMUSTINE
     Indication: Follicular lymphoma stage IV
     Dosage: UNK
     Route: 065
  2. OBINUTUZUMAB [Suspect]
     Active Substance: OBINUTUZUMAB
     Indication: Follicular lymphoma stage IV
     Dosage: UNK
     Route: 065

REACTIONS (6)
  - Acute respiratory failure [Unknown]
  - Pneumothorax spontaneous [Recovered/Resolved]
  - Post-acute COVID-19 syndrome [Not Recovered/Not Resolved]
  - Lung disorder [Not Recovered/Not Resolved]
  - Condition aggravated [Not Recovered/Not Resolved]
  - Pneumonia [Unknown]
